FAERS Safety Report 19105967 (Version 2)
Quarter: 2021Q2

REPORT INFORMATION
  Report Type: Spontaneous
  Country: US (occurrence: US)
  Receive Date: 20210408
  Receipt Date: 20210420
  Transmission Date: 20210717
  Serious: Yes (Hospitalization, Other)
  Sender: FDA-Public Use
  Company Number: US-DRREDDYS-USA/USA/21/0133906

PATIENT
  Age: 33 Year
  Sex: Male

DRUGS (12)
  1. TACROLIMUS. [Suspect]
     Active Substance: TACROLIMUS
     Dosage: TROUGH LEVEL: 6?8 NG/ML
  2. THYMOGLOBULIN [Concomitant]
     Active Substance: LAPINE T-LYMPHOCYTE IMMUNE GLOBULIN
     Indication: PRODUCT USED FOR UNKNOWN INDICATION
  3. TACROLIMUS. [Suspect]
     Active Substance: TACROLIMUS
     Dosage: TROUGH LEVEL: 4?6 NG/ML
  4. MYCOPHENOLATE MOFETIL. [Suspect]
     Active Substance: MYCOPHENOLATE MOFETIL
     Indication: IMMUNOSUPPRESSION
  5. MYCOPHENOLATE MOFETIL. [Suspect]
     Active Substance: MYCOPHENOLATE MOFETIL
  6. MYCOPHENOLATE MOFETIL. [Suspect]
     Active Substance: MYCOPHENOLATE MOFETIL
  7. PREDNISONE. [Suspect]
     Active Substance: PREDNISONE
     Indication: IMMUNOSUPPRESSION
  8. PREDNISONE. [Suspect]
     Active Substance: PREDNISONE
  9. TACROLIMUS. [Suspect]
     Active Substance: TACROLIMUS
     Indication: IMMUNOSUPPRESSION
     Dosage: TROUGH LEVEL: 12?15 NG/ML
  10. SIROLIMUS. [Suspect]
     Active Substance: SIROLIMUS
     Indication: IMMUNOSUPPRESSION
     Dosage: TROUGH LEVEL: 8?12 NG/ML
  11. SIROLIMUS. [Suspect]
     Active Substance: SIROLIMUS
     Dosage: TROUGH LEVEL: 6?8 NG/ML
  12. MYCOPHENOLATE MOFETIL. [Suspect]
     Active Substance: MYCOPHENOLATE MOFETIL

REACTIONS (6)
  - Leukopenia [Unknown]
  - Kaposi^s sarcoma [Recovering/Resolving]
  - HIV infection [Recovering/Resolving]
  - Giant cell myocarditis [Recovering/Resolving]
  - Transplant rejection [Recovering/Resolving]
  - Respiratory syncytial virus infection [Unknown]
